FAERS Safety Report 5499861-7 (Version None)
Quarter: 2007Q4

REPORT INFORMATION
  Report Type: 
  Country: None (occurrence: None)
  Receive Date: 20071026
  Receipt Date: 20071017
  Transmission Date: 20080405
  Serious: Yes (Hospitalization)
  Sender: FDA-Public Use
  Company Number: US-GENENTECH-249746

PATIENT
  Sex: Male
  Weight: 72.562 kg

DRUGS (5)
  1. BEVACIZUMAB [Suspect]
     Indication: COLON CANCER
     Dosage: 5 MG/KG, Q2W
     Route: 042
     Dates: start: 20070716
  2. OXALIPLATIN [Concomitant]
     Indication: COLON CANCER
     Dosage: 166 MG, Q2W
     Route: 042
     Dates: start: 20070703
  3. FLUOROURACIL [Concomitant]
     Indication: COLON CANCER
     Dosage: 780 MG, Q2W
     Route: 040
     Dates: start: 20070703
  4. FLUOROURACIL [Concomitant]
     Dosage: 1170 MG, Q2W
     Route: 042
     Dates: start: 20070703
  5. LEUCOVORIN CALCIUM [Concomitant]
     Indication: COLON CANCER
     Dosage: 390 MG, Q2W
     Route: 042
     Dates: start: 20070703

REACTIONS (1)
  - ANAEMIA [None]
